FAERS Safety Report 17883049 (Version 2)
Quarter: 2020Q4

REPORT INFORMATION
  Report Type: Report from Study
  Country: None (occurrence: US)
  Receive Date: 20200611
  Receipt Date: 20201007
  Transmission Date: 20210113
  Serious: Yes (Other)
  Sender: FDA-Public Use
  Company Number: US-ABBVIE-20K-163-3434107-00

PATIENT
  Sex: Female

DRUGS (1)
  1. HUMIRA [Suspect]
     Active Substance: ADALIMUMAB
     Indication: RHEUMATOID ARTHRITIS
     Dosage: CITRATE FREE
     Route: 058
     Dates: start: 202002

REACTIONS (4)
  - Rash [Unknown]
  - Intracranial aneurysm [Recovered/Resolved]
  - Mania [Unknown]
  - Dehydration [Unknown]

NARRATIVE: CASE EVENT DATE: 2020
